FAERS Safety Report 10842876 (Version 1)
Quarter: 2015Q1

REPORT INFORMATION
  Report Type: Report from Study
  Country: US (occurrence: US)
  Receive Date: 20150220
  Receipt Date: 20150220
  Transmission Date: 20150721
  Serious: Yes (Other)
  Sender: FDA-Public Use
  Company Number: US-ABBVIE-14P-163-1272534-00

PATIENT
  Age: 65 Year
  Sex: Male

DRUGS (7)
  1. HUMIRA [Suspect]
     Active Substance: ADALIMUMAB
     Indication: CROHN^S DISEASE
     Dates: start: 20140703, end: 20140703
  2. HUMIRA [Suspect]
     Active Substance: ADALIMUMAB
     Dates: start: 2014
  3. ANDROGEL [Concomitant]
     Active Substance: TESTOSTERONE
     Indication: PRODUCT USED FOR UNKNOWN INDICATION
  4. HUMIRA [Suspect]
     Active Substance: ADALIMUMAB
     Dates: start: 20140717, end: 20140717
  5. 2 BLOOD PRESSURE MEDICATIONS [Concomitant]
     Indication: BLOOD PRESSURE
  6. ASACOL [Concomitant]
     Active Substance: MESALAMINE
     Indication: PRODUCT USED FOR UNKNOWN INDICATION
  7. MENS ROGAINE UNSCENTED FORMULA [Suspect]
     Active Substance: MINOXIDIL
     Indication: ALOPECIA

REACTIONS (5)
  - Injection site pain [Not Recovered/Not Resolved]
  - Balance disorder [Not Recovered/Not Resolved]
  - Cataract [Not Recovered/Not Resolved]
  - Alopecia [Unknown]
  - Drug ineffective [Unknown]

NARRATIVE: CASE EVENT DATE: 2014
